FAERS Safety Report 9307780 (Version 1)
Quarter: 2013Q2

REPORT INFORMATION
  Report Type: Spontaneous
  Country: US (occurrence: US)
  Receive Date: 20130524
  Receipt Date: 20130524
  Transmission Date: 20140414
  Serious: Yes (Hospitalization)
  Sender: FDA-Public Use
  Company Number: US-VERTEX PHARMACEUTICALS INC-2013-006374

PATIENT
  Sex: Male

DRUGS (3)
  1. INCIVEK [Suspect]
     Indication: HEPATITIS C
     Dosage: UNK
     Route: 048
     Dates: start: 201304, end: 20130522
  2. INTERFERON [Suspect]
     Indication: HEPATITIS C
     Dosage: UNK
     Dates: start: 201304, end: 20130522
  3. RIBAVIRIN [Suspect]
     Indication: HEPATITIS C
     Dosage: UNK
     Dates: start: 201304, end: 20130522

REACTIONS (2)
  - Rash generalised [Not Recovered/Not Resolved]
  - Pyrexia [Not Recovered/Not Resolved]
